FAERS Safety Report 17550147 (Version 1)
Quarter: 2020Q1

REPORT INFORMATION
  Report Type: Spontaneous
  Country: JP (occurrence: JP)
  Receive Date: 20200317
  Receipt Date: 20200317
  Transmission Date: 20200409
  Serious: Yes (Other)
  Sender: FDA-Public Use
  Company Number: JP-PFIZER INC-2020108927

PATIENT
  Sex: Female

DRUGS (2)
  1. LYRICA [Suspect]
     Active Substance: PREGABALIN
     Dosage: UNK (TWO TABLETS-TWO TABLETS)
     Route: 048
  2. LYRICA [Suspect]
     Active Substance: PREGABALIN
     Indication: PAIN
     Dosage: UNK
     Route: 048
     Dates: start: 201909

REACTIONS (11)
  - Arrhythmia [Recovered/Resolved]
  - Bradycardia [Unknown]
  - Weight increased [Recovering/Resolving]
  - Asthenia [Unknown]
  - Palpitations [Unknown]
  - Dyspnoea [Unknown]
  - Fluid retention [Unknown]
  - Cardiomegaly [Recovering/Resolving]
  - Gait disturbance [Unknown]
  - Cardiac failure [Unknown]
  - Tachycardia [Unknown]
